FAERS Safety Report 7358570-X (Version None)
Quarter: 2011Q1

REPORT INFORMATION
  Report Type: 
  Country: None (occurrence: None)
  Receive Date: 20110310
  Receipt Date: 20110224
  Transmission Date: 20110831
  Serious: Yes (Death, Hospitalization)
  Sender: FDA-Public Use
  Company Number: 027720

PATIENT
  Sex: Male

DRUGS (1)
  1. KEPPRA [Suspect]
     Dosage: (500 MG BID)

REACTIONS (2)
  - PNEUMONIA [None]
  - INFLUENZA [None]
